FAERS Safety Report 5040655-4 (Version None)
Quarter: 2006Q2

REPORT INFORMATION
  Report Type: 
  Country: None (occurrence: None)
  Receive Date: 20060629
  Receipt Date: 20060629
  Transmission Date: 20061013
  Serious: Yes (Hospitalization)
  Sender: FDA-Public Use
  Company Number: None

PATIENT
  Age: 67 Year
  Sex: Male
  Weight: 56 kg

DRUGS (1)
  1. INDOMETHACIN [Suspect]
     Indication: GOUT
     Dosage: 50 MG TID
     Dates: start: 20060415, end: 20060416

REACTIONS (2)
  - BLOOD CREATININE INCREASED [None]
  - CONDITION AGGRAVATED [None]
